FAERS Safety Report 18915612 (Version 1)
Quarter: 2021Q1

REPORT INFORMATION
  Report Type: Spontaneous
  Country: US (occurrence: US)
  Receive Date: 20210219
  Receipt Date: 20210219
  Transmission Date: 20210420
  Serious: Yes (Hospitalization)
  Sender: FDA-Public Use
  Company Number: None

PATIENT
  Age: 23 Year
  Sex: Male
  Weight: 139.9 kg

DRUGS (1)
  1. CARBOPLATIN. [Suspect]
     Active Substance: CARBOPLATIN
     Dates: end: 20210127

REACTIONS (7)
  - Chest X-ray abnormal [None]
  - Cough [None]
  - Chills [None]
  - Pneumothorax [None]
  - Pneumonia [None]
  - Pyrexia [None]
  - Lethargy [None]

NARRATIVE: CASE EVENT DATE: 20210214
